FAERS Safety Report 21439844 (Version 1)
Quarter: 2022Q4

REPORT INFORMATION
  Report Type: Spontaneous
  Country: US (occurrence: None)
  Receive Date: 20221007
  Receipt Date: 20221007
  Transmission Date: 20230112
  Serious: Yes (Other)
  Sender: FDA-Public Use
  Company Number: None

PATIENT
  Age: 26 Year
  Sex: Female
  Weight: 74.25 kg

DRUGS (1)
  1. ELURYNG [Suspect]
     Active Substance: ETHINYL ESTRADIOL\ETONOGESTREL
     Indication: Contraception
     Route: 067
     Dates: start: 20220926

REACTIONS (3)
  - Headache [None]
  - Ophthalmic migraine [None]
  - Vision blurred [None]

NARRATIVE: CASE EVENT DATE: 20221007
